FAERS Safety Report 11969558 (Version 1)
Quarter: 2016Q1

REPORT INFORMATION
  Report Type: Spontaneous
  Country: US (occurrence: US)
  Receive Date: 20160128
  Receipt Date: 20160128
  Transmission Date: 20160526
  Serious: Yes (Other)
  Sender: FDA-Public Use
  Company Number: US-WATSON-2016-01609

PATIENT
  Age: 29 Year
  Sex: Male

DRUGS (1)
  1. URSODEOXYCHOLIC ACID (UNKNOWN) [Suspect]
     Active Substance: URSODIOL
     Indication: TRANSAMINASES INCREASED
     Dosage: 1 DF, SINGLE
     Route: 065

REACTIONS (2)
  - Arrhythmia [Recovered/Resolved]
  - Angioedema [Recovered/Resolved]
